FAERS Safety Report 6750797-0 (Version None)
Quarter: 2010Q2

REPORT INFORMATION
  Report Type: 
  Country: None (occurrence: None)
  Receive Date: 20100602
  Receipt Date: 20100521
  Transmission Date: 20101027
  Serious: Yes (Hospitalization, Other)
  Sender: FDA-Public Use
  Company Number: HQWYE526904OCT04

PATIENT
  Sex: Female
  Weight: 123.03 kg

DRUGS (1)
  1. PREMPRO [Suspect]
     Dosage: UNSPECIFIED
     Route: 048
     Dates: start: 19970101, end: 20010903

REACTIONS (2)
  - ATRIAL THROMBOSIS [None]
  - PULMONARY EMBOLISM [None]
